FAERS Safety Report 14049768 (Version 1)
Quarter: 2017Q4

REPORT INFORMATION
  Report Type: Spontaneous
  Country: IT (occurrence: IT)
  Receive Date: 20171005
  Receipt Date: 20171005
  Transmission Date: 20180321
  Serious: Yes (Hospitalization)
  Sender: FDA-Public Use
  Company Number: IT-PFIZER INC-2017425378

PATIENT
  Age: 79 Year
  Sex: Female

DRUGS (3)
  1. SERTRALINE HCL [Suspect]
     Active Substance: SERTRALINE HYDROCHLORIDE
     Dosage: UNK
  2. PRAMIPEXOL [Suspect]
     Active Substance: PRAMIPEXOLE
     Dosage: UNK
  3. LEVODOPA [Suspect]
     Active Substance: LEVODOPA
     Dosage: UNK

REACTIONS (1)
  - Heat stroke [Unknown]

NARRATIVE: CASE EVENT DATE: 2015
